FAERS Safety Report 11135348 (Version 3)
Quarter: 2015Q2

REPORT INFORMATION
  Report Type: Spontaneous
  Country: JP (occurrence: JP)
  Receive Date: 20150525
  Receipt Date: 20150625
  Transmission Date: 20150821
  Serious: Yes (Death, Hospitalization)
  Sender: FDA-Public Use
  Company Number: PHJP2015JP008298

PATIENT
  Age: 79 Year
  Sex: Male

DRUGS (3)
  1. LEVODOPA [Suspect]
     Active Substance: LEVODOPA
     Indication: PARKINSON^S DISEASE
     Dosage: 100 MG, UNK
     Route: 048
     Dates: start: 201405, end: 20150501
  2. COMTAN [Suspect]
     Active Substance: ENTACAPONE
     Indication: PARKINSON^S DISEASE
     Dosage: 100 MG, UNK
     Route: 048
     Dates: start: 201405, end: 20150501
  3. NEUPRO [Concomitant]
     Active Substance: ROTIGOTINE
     Indication: PARKINSON^S DISEASE
     Dosage: 2.25 MG, UNK
     Route: 062
     Dates: start: 201405

REACTIONS (3)
  - Dysphagia [Fatal]
  - Parkinson^s disease [Fatal]
  - Cardiac failure [Fatal]

NARRATIVE: CASE EVENT DATE: 201504
